FAERS Safety Report 5725980-3 (Version None)
Quarter: 2008Q2

REPORT INFORMATION
  Report Type: 
  Country: None (occurrence: None)
  Receive Date: 20080502
  Receipt Date: 20080429
  Transmission Date: 20081010
  Serious: Yes (Hospitalization)
  Sender: FDA-Public Use
  Company Number: BR-BRISTOL-MYERS SQUIBB COMPANY-14172084

PATIENT
  Age: 55 Year
  Sex: Male

DRUGS (2)
  1. HYDREA [Suspect]
     Indication: SICKLE CELL ANAEMIA
     Dosage: DRUG INTERRUPTED. THIRD DOSE RESTARTED.
     Route: 048
  2. DIGOXIN [Concomitant]

REACTIONS (2)
  - DIARRHOEA [None]
  - HYPOTENSION [None]
